FAERS Safety Report 25004432 (Version 1)
Quarter: 2025Q1

REPORT INFORMATION
  Report Type: Spontaneous
  Country: US (occurrence: None)
  Receive Date: 20250222
  Receipt Date: 20250222
  Transmission Date: 20250409
  Serious: Yes (Disabling, Other)
  Sender: FDA-CTU
  Company Number: None

PATIENT
  Age: 35 Year
  Sex: Female

DRUGS (3)
  1. AJOVY [Suspect]
     Active Substance: FREMANEZUMAB-VFRM
  2. EMGALITY [Suspect]
     Active Substance: GALCANEZUMAB-GNLM
  3. AIMOVIG [Suspect]
     Active Substance: ERENUMAB-AOOE

REACTIONS (13)
  - Orthostatic hypotension [None]
  - Postural orthostatic tachycardia syndrome [None]
  - Headache [None]
  - Headache [None]
  - Brain fog [None]
  - Disturbance in attention [None]
  - Exercise tolerance decreased [None]
  - Loss of personal independence in daily activities [None]
  - Dyspnoea exertional [None]
  - Gait disturbance [None]
  - Eating disorder [None]
  - Impaired work ability [None]
  - Fatigue [None]

NARRATIVE: CASE EVENT DATE: 20201115
